FAERS Safety Report 10074500 (Version 1)
Quarter: 2014Q2

REPORT INFORMATION
  Report Type: Spontaneous
  Country: US (occurrence: US)
  Receive Date: 20140411
  Receipt Date: 20140411
  Transmission Date: 20141212
  Serious: No
  Sender: FDA-Public Use
  Company Number: US-SA-2013SA108747

PATIENT
  Sex: Female

DRUGS (1)
  1. ALLEGRA D [Suspect]
     Indication: ARTHRITIS
     Dosage: FEXOFENADINE HCL 60MG AND PSEUDOEPHEDRINE HCL 120MG
     Route: 048

REACTIONS (1)
  - Pain in extremity [Unknown]
